FAERS Safety Report 4795857-9 (Version None)
Quarter: 2005Q4

REPORT INFORMATION
  Report Type: 
  Country: None (occurrence: None)
  Receive Date: 20051012
  Receipt Date: 20051004
  Transmission Date: 20060501
  Serious: Yes (Death)
  Sender: FDA-Public Use
  Company Number: FR-ABBOTT-05P-056-0312845-00

PATIENT
  Sex: Female

DRUGS (1)
  1. HUMIRA [Suspect]
     Indication: RHEUMATOID ARTHRITIS
     Route: 058
     Dates: start: 20030502, end: 20031030

REACTIONS (3)
  - ASTHENIA [None]
  - PULMONARY FIBROSIS [None]
  - RESPIRATORY DISTRESS [None]
